FAERS Safety Report 5839141-0 (Version None)
Quarter: 2008Q3

REPORT INFORMATION
  Report Type: 
  Country: None (occurrence: None)
  Receive Date: 20080808
  Receipt Date: 20080728
  Transmission Date: 20090109
  Serious: Yes (Death, Hospitalization, Congenital Anomaly, Other)
  Sender: FDA-Public Use
  Company Number: FR-PFIZER INC-2008037309

PATIENT
  Sex: Male

DRUGS (3)
  1. NEURONTIN [Suspect]
     Dosage: DAILY DOSE:500MG
  2. DEPAKENE [Suspect]
     Dosage: DAILY DOSE:1GRAM
  3. FOLIC ACID [Concomitant]

REACTIONS (11)
  - ABORTION INDUCED [None]
  - DIAPHRAGMATIC HERNIA [None]
  - DRUG EXPOSURE DURING PREGNANCY [None]
  - FINGER DEFORMITY [None]
  - HYPERTELORISM OF ORBIT [None]
  - MATERNAL DRUGS AFFECTING FOETUS [None]
  - PLEURAL EFFUSION [None]
  - PULMONARY HYPOPLASIA [None]
  - PULMONARY MALFORMATION [None]
  - RENAL TUBULAR DISORDER [None]
  - TALIPES [None]
